FAERS Safety Report 13648995 (Version 1)
Quarter: 2017Q2

REPORT INFORMATION
  Report Type: Report from Study
  Country: IT (occurrence: IT)
  Receive Date: 20170613
  Receipt Date: 20170613
  Transmission Date: 20170830
  Serious: Yes (Hospitalization)
  Sender: FDA-Public Use
  Company Number: IT-TEVA-776873ACC

PATIENT
  Age: 94 Year
  Sex: Female

DRUGS (4)
  1. QUENTIAX [Suspect]
     Active Substance: QUETIAPINE FUMARATE
     Indication: COGNITIVE DISORDER
     Route: 048
     Dates: start: 20170215, end: 20170218
  2. TRITTICO [Suspect]
     Active Substance: TRAZODONE HYDROCHLORIDE
     Indication: COGNITIVE DISORDER
     Dosage: 25 GTT DAILY;
     Route: 048
     Dates: start: 20170215, end: 20170218
  3. TRIAZOLAM. [Suspect]
     Active Substance: TRIAZOLAM
     Indication: COGNITIVE DISORDER
     Dosage: 2 DOSAGE FORMS DAILY;
     Route: 048
     Dates: start: 20170215, end: 20170218
  4. EUTIROX [Concomitant]
     Active Substance: LEVOTHYROXINE SODIUM
     Indication: HYPOTHYROIDISM

REACTIONS (2)
  - Confusional state [Unknown]
  - Sopor [Unknown]

NARRATIVE: CASE EVENT DATE: 20170218
